FAERS Safety Report 5158278-5 (Version None)
Quarter: 2006Q4

REPORT INFORMATION
  Report Type: 
  Country: None (occurrence: None)
  Receive Date: 20061121
  Receipt Date: 20061121
  Transmission Date: 20070319
  Serious: Yes (Hospitalization)
  Sender: FDA-Public Use
  Company Number: None

PATIENT
  Age: 66 Year
  Sex: Female
  Weight: 65.1 kg

DRUGS (1)
  1. DAPTOMYCIN INJECTION [Suspect]
     Indication: STAPHYLOCOCCAL BACTERAEMIA
     Dosage: 360MG DAILY IV
     Route: 042
     Dates: start: 20061001

REACTIONS (4)
  - AGRANULOCYTOSIS [None]
  - CHILLS [None]
  - HERPES SIMPLEX [None]
  - PYREXIA [None]
